FAERS Safety Report 20264184 (Version 1)
Quarter: 2021Q4

REPORT INFORMATION
  Report Type: Spontaneous
  Country: UY (occurrence: UY)
  Receive Date: 20211231
  Receipt Date: 20211231
  Transmission Date: 20220303
  Serious: Yes (Death)
  Sender: FDA-Public Use
  Company Number: UY-NOVARTISPH-NVSC2021UY299853

PATIENT

DRUGS (1)
  1. ENTRESTO [Suspect]
     Active Substance: SACUBITRIL\VALSARTAN
     Indication: Cardiac failure
     Dosage: 400 MG (2 OF 200 MG; TWO INTAKES, ONE EVERY 12 HOURS)
     Route: 048

REACTIONS (1)
  - Cardiac failure [Fatal]
